FAERS Safety Report 4297099-2 (Version None)
Quarter: 2004Q1

REPORT INFORMATION
  Report Type: 
  Country: None (occurrence: None)
  Receive Date: 20040126
  Receipt Date: 20030903
  Transmission Date: 20041129
  Serious: No
  Sender: FDA-Public Use
  Company Number: USA030946089

PATIENT
  Age: 9 Year
  Sex: Male
  Weight: 29 kg

DRUGS (2)
  1. STRATTERA [Suspect]
     Indication: ATTENTION DEFICIT/HYPERACTIVITY DISORDER
     Dosage: 25 MG
     Dates: end: 20030801
  2. SEROQUEL (QUETLAPINE FUMARATE) [Concomitant]

REACTIONS (1)
  - MEMORY IMPAIRMENT [None]
